FAERS Safety Report 7511197-9 (Version None)
Quarter: 2011Q2

REPORT INFORMATION
  Report Type: 
  Country: None (occurrence: None)
  Receive Date: 20110531
  Receipt Date: 20110516
  Transmission Date: 20111010
  Serious: Yes (Hospitalization, Other)
  Sender: FDA-Public Use
  Company Number: PHHY2009JP47064

PATIENT
  Sex: Female
  Weight: 54 kg

DRUGS (17)
  1. NEORAL [Suspect]
     Dosage: 225 MG
     Route: 048
     Dates: start: 20090211
  2. MUCOSTA [Concomitant]
     Indication: PROPHYLAXIS
     Dosage: 300 MG
     Route: 048
     Dates: start: 20090124
  3. FOLIC ACID [Concomitant]
     Indication: ANAEMIA
     Route: 048
     Dates: start: 20081125, end: 20090604
  4. PREDNISOLONE [Suspect]
     Dosage: 50 MG
     Route: 048
     Dates: start: 20090129, end: 20090204
  5. METHYCOBAL [Concomitant]
     Indication: NEUROPATHY PERIPHERAL
     Dosage: 1000 UG
     Route: 048
     Dates: start: 20081125, end: 20090604
  6. NEORAL [Suspect]
     Dosage: 5 MG/KG
     Dates: start: 20070201
  7. PREDNISOLONE [Suspect]
     Indication: PUSTULAR PSORIASIS
     Dosage: 30 MG
     Route: 048
     Dates: start: 20090124, end: 20090128
  8. PREDNISOLONE [Suspect]
     Dosage: 35 MG
     Route: 048
     Dates: start: 20090212
  9. PREDNISOLONE [Suspect]
     Dosage: 10 MG
     Route: 048
     Dates: start: 20090501, end: 20090909
  10. FERROUS CITRATE [Concomitant]
     Indication: ANAEMIA
     Dosage: 100 MG
     Route: 048
     Dates: start: 20081125, end: 20090604
  11. AZUNOL [Concomitant]
     Route: 061
     Dates: start: 20090124
  12. NEORAL [Suspect]
     Indication: PUSTULAR PSORIASIS
     Dosage: 125 MG
     Route: 048
     Dates: end: 20090116
  13. NEORAL [Suspect]
     Dosage: 200 MG
     Route: 048
     Dates: start: 20090117, end: 20090119
  14. NEORAL [Suspect]
     Dosage: 225 MG
     Route: 048
     Dates: start: 20090120, end: 20090204
  15. FAMOTIDINE [Concomitant]
     Indication: GASTRITIS
     Dosage: 20 MG
     Route: 048
     Dates: start: 20090129, end: 20090728
  16. PREDNISOLONE [Suspect]
     Dosage: 40 MG
     Route: 048
     Dates: start: 20090205, end: 20090211
  17. NEORAL [Suspect]
     Dosage: 275 MG
     Route: 048
     Dates: start: 20090205, end: 20090210

REACTIONS (12)
  - OEDEMA PERIPHERAL [None]
  - ERYTHEMA [None]
  - DECREASED APPETITE [None]
  - RASH PUSTULAR [None]
  - PAIN [None]
  - PSORIASIS [None]
  - HYPERKERATOSIS [None]
  - PYREXIA [None]
  - MALAISE [None]
  - HYPERTHERMIA [None]
  - DRUG EXPOSURE DURING PREGNANCY [None]
  - NORMAL NEWBORN [None]
